FAERS Safety Report 13406690 (Version 1)
Quarter: 2017Q2

REPORT INFORMATION
  Report Type: Spontaneous
  Country: US (occurrence: US)
  Receive Date: 20170405
  Receipt Date: 20170405
  Transmission Date: 20170830
  Serious: Yes (Other)
  Sender: FDA-Public Use
  Company Number: US-NOVOPROD-504339

PATIENT
  Sex: Female

DRUGS (1)
  1. GLUCAGEN [Suspect]
     Active Substance: GLUCAGON HYDROCHLORIDE
     Indication: BLOOD GLUCOSE DECREASED
     Route: 058

REACTIONS (2)
  - Hypoglycaemic unconsciousness [Unknown]
  - Product use issue [Unknown]
